FAERS Safety Report 4970383-2 (Version None)
Quarter: 2006Q2

REPORT INFORMATION
  Report Type: 
  Country: None (occurrence: None)
  Receive Date: 20060412
  Receipt Date: 20060410
  Transmission Date: 20061013
  Serious: Yes (Hospitalization)
  Sender: FDA-Public Use
  Company Number: US-GLAXOSMITHKLINE-A0601130A

PATIENT
  Age: 39 Year
  Sex: Male

DRUGS (2)
  1. LAMICTAL [Suspect]
     Indication: BIPOLAR DISORDER
     Dosage: 25MG PER DAY
     Route: 048
     Dates: start: 20060301, end: 20060401
  2. ADVIL [Concomitant]

REACTIONS (5)
  - MOUTH HAEMORRHAGE [None]
  - MOUTH ULCERATION [None]
  - ORAL PAIN [None]
  - PARAESTHESIA [None]
  - RASH [None]
